FAERS Safety Report 4810446-5 (Version None)
Quarter: 2005Q4

REPORT INFORMATION
  Report Type: 
  Country: None (occurrence: None)
  Receive Date: 20051024
  Receipt Date: 20051016
  Transmission Date: 20060501
  Serious: Yes (Hospitalization, Other)
  Sender: FDA-Public Use
  Company Number: 163-20785-05100297

PATIENT
  Age: 47 Year
  Sex: Female
  Weight: 51.8 kg

DRUGS (19)
  1. THALOMID [Suspect]
     Indication: MULTIPLE MYELOMA
     Dosage: 100 MG, DAILY, ORAL
     Route: 048
     Dates: start: 20020806, end: 20050101
  2. DEXAMETHASONE [Suspect]
     Indication: MULTIPLE MYELOMA
     Dates: start: 20050101, end: 20050101
  3. OXYCONTIN [Concomitant]
  4. OXYCODONE HCL [Concomitant]
  5. LORCET-HD [Concomitant]
  6. PREMARIN [Concomitant]
  7. ALPRAZOLAM [Concomitant]
  8. ZOMETA [Concomitant]
  9. SENOKOT-S (SENOKOT-S) [Concomitant]
  10. ZELNORM [Concomitant]
  11. ENULOSE [Concomitant]
  12. CORAL CALCIUM (CALCIUM) [Concomitant]
  13. MULTIVITAMINS WITH MINERALS (MULTIVITAMINS WITH MINERALS) [Concomitant]
  14. ACIPHEX [Concomitant]
  15. ZANTAC [Concomitant]
  16. FERROUS SULFATE TAB [Concomitant]
  17. VITAMIN C(ASCORBIC ACID) [Concomitant]
  18. DULCOLAX [Concomitant]
  19. METAMUCIL-2 [Concomitant]

REACTIONS (10)
  - ABDOMINAL DISCOMFORT [None]
  - ABDOMINAL DISTENSION [None]
  - ABDOMINAL PAIN UPPER [None]
  - BACK PAIN [None]
  - DIARRHOEA [None]
  - DISEASE PROGRESSION [None]
  - DRUG INTOLERANCE [None]
  - HIP ARTHROPLASTY [None]
  - NAUSEA [None]
  - PARAESTHESIA [None]
